FAERS Safety Report 6079904-2 (Version None)
Quarter: 2009Q1

REPORT INFORMATION
  Report Type: 
  Country: None (occurrence: None)
  Receive Date: 20090217
  Receipt Date: 20081211
  Transmission Date: 20090719
  Serious: Yes (Death)
  Sender: FDA-Public Use
  Company Number: KR-PFIZER INC-2008089359

PATIENT
  Sex: Male
  Weight: 71 kg

DRUGS (11)
  1. VORICONAZOLE [Suspect]
     Indication: SCEDOSPORIUM INFECTION
     Dosage: 200 MG, 2X/DAY
     Dates: start: 20080302, end: 20080302
  2. ZYVOX [Concomitant]
     Dates: start: 20080223, end: 20080302
  3. FUNGIZONE [Concomitant]
     Indication: SEPSIS
     Dates: start: 20080225, end: 20080302
  4. FUNGIZONE [Concomitant]
     Indication: PNEUMONIA
  5. TAZOCIN [Concomitant]
     Indication: SEPSIS
     Dates: start: 20080223, end: 20080302
  6. TAZOCIN [Concomitant]
     Indication: PNEUMONIA
  7. PIPERACILLIN [Concomitant]
     Dates: start: 20080302, end: 20080302
  8. AMIKIN [Concomitant]
     Indication: SEPSIS
     Dates: start: 20080223, end: 20080302
  9. AMIKIN [Concomitant]
     Indication: PNEUMONIA
  10. CIPROFLOXACIN HCL [Concomitant]
     Indication: SEPSIS
     Dates: start: 20080302, end: 20080302
  11. CIPROFLOXACIN HCL [Concomitant]
     Indication: PNEUMONIA

REACTIONS (2)
  - PNEUMONIA [None]
  - SEPTIC SHOCK [None]
